FAERS Safety Report 4323885-6 (Version None)
Quarter: 2004Q1

REPORT INFORMATION
  Report Type: 
  Country: None (occurrence: None)
  Receive Date: 20040326
  Receipt Date: 20030916
  Transmission Date: 20041129
  Serious: No
  Sender: FDA-Public Use
  Company Number: US-GLAXOSMITHKLINE-A0426099A

PATIENT
  Age: 40 Year
  Sex: Female

DRUGS (10)
  1. ADVAIR DISKUS 100/50 [Suspect]
     Indication: ASTHMA
     Dosage: 1PUFF TWICE PER DAY
     Route: 055
     Dates: start: 20010101
  2. SINGULAIR [Concomitant]
  3. ALBUTEROL [Concomitant]
  4. INSULIN [Concomitant]
  5. HUMIBID LA [Concomitant]
  6. EFFEXOR XR [Concomitant]
  7. LAMICTAL [Concomitant]
  8. TOPAMAX [Concomitant]
  9. NORTRIPTYLINE HCL [Concomitant]
  10. IRON [Concomitant]

REACTIONS (1)
  - ASTHMA [None]
